FAERS Safety Report 6066700-5 (Version None)
Quarter: 2009Q1

REPORT INFORMATION
  Report Type: 
  Country: None (occurrence: None)
  Receive Date: 20090205
  Receipt Date: 20090126
  Transmission Date: 20090719
  Serious: Yes (Hospitalization, Other)
  Sender: FDA-Public Use
  Company Number: JP-GILEAD-2009-0020075

PATIENT
  Sex: Male

DRUGS (4)
  1. TRUVADA [Suspect]
     Indication: HIV INFECTION
     Route: 048
     Dates: start: 20090119
  2. KALETRA [Suspect]
     Indication: HIV INFECTION
     Dates: start: 20090119, end: 20090125
  3. BENAMBAX [Concomitant]
     Dates: start: 20081227
  4. ZITHROMAX [Concomitant]
     Dates: start: 20090106

REACTIONS (1)
  - ATRIOVENTRICULAR BLOCK SECOND DEGREE [None]
